FAERS Safety Report 18418740 (Version 3)
Quarter: 2020Q4

REPORT INFORMATION
  Report Type: Report from Study
  Country: None (occurrence: CA)
  Receive Date: 20201023
  Receipt Date: 20201214
  Transmission Date: 20210114
  Serious: Yes (Hospitalization, Other)
  Sender: FDA-Public Use
  Company Number: CA-ABBVIE-20K-028-3617231-00

PATIENT
  Sex: Female

DRUGS (1)
  1. RINVOQ [Suspect]
     Active Substance: UPADACITINIB
     Indication: RHEUMATOID ARTHRITIS
     Route: 048
     Dates: start: 20200930, end: 20201012

REACTIONS (3)
  - Postoperative wound infection [Unknown]
  - Diverticulitis [Unknown]
  - Abscess intestinal [Unknown]

NARRATIVE: CASE EVENT DATE: 2020
